FAERS Safety Report 10213388 (Version 5)
Quarter: 2019Q4

REPORT INFORMATION
  Report Type: Report from Study
  Country: BR (occurrence: BR)
  Receive Date: 20140603
  Receipt Date: 20191113
  Transmission Date: 20200122
  Serious: Yes (Hospitalization, Disabling, Other)
  Sender: FDA-Public Use
  Company Number: BR-ROCHE-1402558

PATIENT
  Sex: Female
  Weight: 57 kg

DRUGS (9)
  1. CEBRALAT [Concomitant]
     Active Substance: CILOSTAZOL
  2. ARAVA [Concomitant]
     Active Substance: LEFLUNOMIDE
  3. PREDNISOLONE. [Concomitant]
     Active Substance: PREDNISOLONE
     Indication: RHEUMATOID ARTHRITIS
  4. CLOPIDOGREL [Concomitant]
     Active Substance: CLOPIDOGREL BISULFATE
  5. ATENOLOL. [Concomitant]
     Active Substance: ATENOLOL
  6. PRESS PLUS [Concomitant]
  7. ASPIRIN [ACETYLSALICYLIC ACID] [Concomitant]
     Active Substance: ASPIRIN
  8. SOMALGIN CARDIO [Concomitant]
     Active Substance: ASPIRIN\DIHYDROXYALUMINUM AMINOACETATE ANHYDROUS\MAGNESIUM CARBONATE
     Indication: HYPERCOAGULATION
  9. ACTEMRA [Suspect]
     Active Substance: TOCILIZUMAB
     Indication: RHEUMATOID ARTHRITIS
     Dosage: THE MOST RECENT INFUSION WAS ON 09/APR/2014 AND PREVIOUS INFUSIONS WAS GIVEN ON 12/MAR/2014, 01/MAR/
     Route: 042
     Dates: start: 20140212

REACTIONS (8)
  - Ill-defined disorder [Unknown]
  - Pain [Not Recovered/Not Resolved]
  - Weight decreased [Recovering/Resolving]
  - Arterial disorder [Not Recovered/Not Resolved]
  - Cardiac disorder [Unknown]
  - Venous occlusion [Unknown]
  - Thrombosis [Unknown]
  - Hypertension [Unknown]
